FAERS Safety Report 12712826 (Version 1)
Quarter: 2016Q3

REPORT INFORMATION
  Report Type: Report from Study
  Country: JP (occurrence: JP)
  Receive Date: 20160902
  Receipt Date: 20160902
  Transmission Date: 20161109
  Serious: Yes (Hospitalization)
  Sender: FDA-Public Use
  Company Number: JP-009507513-1507JPN013999

PATIENT
  Age: 72 Year
  Sex: Female

DRUGS (8)
  1. FERROMIA [Concomitant]
     Active Substance: FERROUS CITRATE
     Indication: IRON DEFICIENCY ANAEMIA
     Dosage: 50 MG, QD, FORMULATION: POR
     Route: 048
     Dates: start: 20140522, end: 20160330
  2. TAKEPRON [Concomitant]
     Active Substance: LANSOPRAZOLE
     Indication: ARTHRITIS
  3. XYZAL [Concomitant]
     Active Substance: LEVOCETIRIZINE DIHYDROCHLORIDE
     Indication: RHINITIS
     Dosage: 5 MG, QD, FORMULATION POR
     Route: 048
     Dates: start: 20140522
  4. ISENTRESS [Suspect]
     Active Substance: RALTEGRAVIR POTASSIUM
     Indication: HIV INFECTION
     Dosage: 800 MG, DIVIDED DOSE FREQUENCY UNKNOWN
     Route: 048
     Dates: start: 20110531
  5. EPZICOM [Concomitant]
     Active Substance: ABACAVIR SULFATE\LAMIVUDINE
     Indication: HIV INFECTION
     Dosage: 1 DF, DEVIDED DOSE FREQUENCY UNKNOWN
     Route: 048
     Dates: start: 20110531
  6. BLOPRESS [Concomitant]
     Active Substance: CANDESARTAN CILEXETIL
     Indication: HYPERTENSION
     Dosage: 4 MG, QD, FORMULATION: POR
     Route: 048
  7. TAKEPRON [Concomitant]
     Active Substance: LANSOPRAZOLE
     Indication: PROPHYLAXIS
     Dosage: 30 MG, QD, FORMULATION: POR
     Route: 048
  8. EDIROL [Concomitant]
     Active Substance: ELDECALCITOL
     Indication: ARTHRITIS
     Dosage: 1 DF, QD
     Route: 048

REACTIONS (1)
  - Transient ischaemic attack [Recovered/Resolved]

NARRATIVE: CASE EVENT DATE: 20140930
